FAERS Safety Report 23116265 (Version 2)
Quarter: 2023Q4

REPORT INFORMATION
  Report Type: Spontaneous
  Country: JP (occurrence: JP)
  Receive Date: 20231027
  Receipt Date: 20231120
  Transmission Date: 20240109
  Serious: Yes (Death, Hospitalization)
  Sender: FDA-Public Use
  Company Number: JP-PFIZER INC-PV202300177318

PATIENT
  Age: 73 Year
  Sex: Male

DRUGS (10)
  1. VYNDAQEL [Suspect]
     Active Substance: TAFAMIDIS MEGLUMINE
     Indication: Cardiac amyloidosis
     Dosage: 80 MG, 1X/DAY
     Dates: start: 20201031, end: 20230919
  2. EPLERENONE [Concomitant]
     Active Substance: EPLERENONE
     Dosage: 100 MG, 1X/DAY
     Dates: end: 20230919
  3. FUROSEMIDE [Concomitant]
     Active Substance: FUROSEMIDE
     Dosage: 100 MG, 1X/DAY
     Dates: end: 20230919
  4. AZOSEMIDE [Concomitant]
     Active Substance: AZOSEMIDE
     Dosage: 120 MG, 1X/DAY
     Dates: end: 20230919
  5. SAMSCA [Concomitant]
     Active Substance: TOLVAPTAN
     Dosage: 18.75 MG, 1X/DAY
     Dates: end: 20230919
  6. JARDIANCE [Concomitant]
     Active Substance: EMPAGLIFLOZIN
     Dosage: 10 MG, 1X/DAY
     Dates: end: 20230919
  7. BISOPROLOL [Concomitant]
     Active Substance: BISOPROLOL\BISOPROLOL FUMARATE
     Dosage: 5 MG, 1X/DAY
     Dates: end: 20230919
  8. FEBUXOSTAT [Concomitant]
     Active Substance: FEBUXOSTAT
     Dosage: 40 MG, 1X/DAY
     Dates: end: 20230919
  9. PIMOBENDAN [Concomitant]
     Active Substance: PIMOBENDAN
     Dosage: 5 MG, 2X/DAY
     Dates: end: 20230919
  10. MILLISTAPE [Concomitant]
     Dosage: 10 MG, 2X/DAY
     Dates: end: 20230919

REACTIONS (2)
  - Cardiac failure [Fatal]
  - Oedema [Unknown]
